FAERS Safety Report 12338883 (Version 2)
Quarter: 2016Q2

REPORT INFORMATION
  Report Type: Spontaneous
  Country: US (occurrence: US)
  Receive Date: 20160505
  Receipt Date: 20160519
  Transmission Date: 20160815
  Serious: No
  Sender: FDA-Public Use
  Company Number: US-PFIZER INC-2016230498

PATIENT
  Sex: Female
  Weight: 1.43 kg

DRUGS (2)
  1. PROPANOLOL HCL [Suspect]
     Active Substance: PROPRANOLOL HYDROCHLORIDE
     Indication: VENTRICULAR TACHYCARDIA
     Dosage: 80 MG, 2X/DAY
     Route: 064
  2. PROPAFENONE. [Suspect]
     Active Substance: PROPAFENONE
     Indication: VENTRICULAR TACHYCARDIA
     Dosage: 425 MG, 2X/DAY
     Route: 064

REACTIONS (1)
  - Maternal exposure during pregnancy [Unknown]
